FAERS Safety Report 25654158 (Version 1)
Quarter: 2025Q3

REPORT INFORMATION
  Report Type: Spontaneous
  Country: GB (occurrence: GB)
  Receive Date: 20250807
  Receipt Date: 20250807
  Transmission Date: 20251021
  Serious: Yes (Hospitalization, Other)
  Sender: MYLAN
  Company Number: GB-MYLANLABS-2025M1054327

PATIENT
  Sex: Female
  Weight: 68 kg

DRUGS (44)
  1. CLOZARIL [Suspect]
     Active Substance: CLOZAPINE
     Indication: Schizophrenia
  2. CLOZARIL [Suspect]
     Active Substance: CLOZAPINE
  3. CLOZARIL [Suspect]
     Active Substance: CLOZAPINE
     Route: 048
  4. CLOZARIL [Suspect]
     Active Substance: CLOZAPINE
     Route: 048
  5. CLOZARIL [Suspect]
     Active Substance: CLOZAPINE
     Dosage: 50 MILLIGRAM, AM (MORNING)
     Dates: end: 20250618
  6. CLOZARIL [Suspect]
     Active Substance: CLOZAPINE
     Dosage: 50 MILLIGRAM, AM (MORNING)
     Dates: end: 20250618
  7. CLOZARIL [Suspect]
     Active Substance: CLOZAPINE
     Dosage: 50 MILLIGRAM, AM (MORNING)
     Route: 048
     Dates: end: 20250618
  8. CLOZARIL [Suspect]
     Active Substance: CLOZAPINE
     Dosage: 50 MILLIGRAM, AM (MORNING)
     Route: 048
     Dates: end: 20250618
  9. AMISULPRIDE [Concomitant]
     Active Substance: AMISULPRIDE
     Dosage: 50 MILLIGRAM, QD (AT NIGHT)
  10. AMISULPRIDE [Concomitant]
     Active Substance: AMISULPRIDE
     Dosage: 50 MILLIGRAM, QD (AT NIGHT)
     Route: 065
  11. AMISULPRIDE [Concomitant]
     Active Substance: AMISULPRIDE
     Dosage: 50 MILLIGRAM, QD (AT NIGHT)
     Route: 065
  12. AMISULPRIDE [Concomitant]
     Active Substance: AMISULPRIDE
     Dosage: 50 MILLIGRAM, QD (AT NIGHT)
  13. SCOPOLAMINE HYDROBROMIDE [Concomitant]
     Active Substance: SCOPOLAMINE HYDROBROMIDE
     Dosage: 300 MICROGRAM, BID
  14. SCOPOLAMINE HYDROBROMIDE [Concomitant]
     Active Substance: SCOPOLAMINE HYDROBROMIDE
     Dosage: 300 MICROGRAM, BID
     Route: 065
  15. SCOPOLAMINE HYDROBROMIDE [Concomitant]
     Active Substance: SCOPOLAMINE HYDROBROMIDE
     Dosage: 300 MICROGRAM, BID
     Route: 065
  16. SCOPOLAMINE HYDROBROMIDE [Concomitant]
     Active Substance: SCOPOLAMINE HYDROBROMIDE
     Dosage: 300 MICROGRAM, BID
  17. SENNA [Concomitant]
     Active Substance: SENNOSIDES
     Dosage: 7.5 MILLIGRAM, QD (AT NIGHT)
  18. SENNA [Concomitant]
     Active Substance: SENNOSIDES
     Dosage: 7.5 MILLIGRAM, QD (AT NIGHT)
     Route: 065
  19. SENNA [Concomitant]
     Active Substance: SENNOSIDES
     Dosage: 7.5 MILLIGRAM, QD (AT NIGHT)
     Route: 065
  20. SENNA [Concomitant]
     Active Substance: SENNOSIDES
     Dosage: 7.5 MILLIGRAM, QD (AT NIGHT)
  21. LORAZEPAM [Concomitant]
     Active Substance: LORAZEPAM
     Dosage: 1 MILLIGRAM, QID
  22. LORAZEPAM [Concomitant]
     Active Substance: LORAZEPAM
     Dosage: 1 MILLIGRAM, QID
     Route: 048
  23. LORAZEPAM [Concomitant]
     Active Substance: LORAZEPAM
     Dosage: 1 MILLIGRAM, QID
     Route: 048
  24. LORAZEPAM [Concomitant]
     Active Substance: LORAZEPAM
     Dosage: 1 MILLIGRAM, QID
  25. PROMETHAZINE [Concomitant]
     Active Substance: PROMETHAZINE HYDROCHLORIDE
     Dosage: 25 MILLIGRAM, QID
  26. PROMETHAZINE [Concomitant]
     Active Substance: PROMETHAZINE HYDROCHLORIDE
     Dosage: 25 MILLIGRAM, QID
     Route: 048
  27. PROMETHAZINE [Concomitant]
     Active Substance: PROMETHAZINE HYDROCHLORIDE
     Dosage: 25 MILLIGRAM, QID
     Route: 048
  28. PROMETHAZINE [Concomitant]
     Active Substance: PROMETHAZINE HYDROCHLORIDE
     Dosage: 25 MILLIGRAM, QID
  29. ACETAMINOPHEN [Concomitant]
     Active Substance: ACETAMINOPHEN
     Dosage: 1 MILLIGRAM, TID, (TID UP TO QID)
  30. ACETAMINOPHEN [Concomitant]
     Active Substance: ACETAMINOPHEN
     Dosage: 1 MILLIGRAM, TID, (TID UP TO QID)
     Route: 048
  31. ACETAMINOPHEN [Concomitant]
     Active Substance: ACETAMINOPHEN
     Dosage: 1 MILLIGRAM, TID, (TID UP TO QID)
     Route: 048
  32. ACETAMINOPHEN [Concomitant]
     Active Substance: ACETAMINOPHEN
     Dosage: 1 MILLIGRAM, TID, (TID UP TO QID)
  33. POLYETHYLENE GLYCOL 3350\POTASSIUM CHLORIDE\SODIUM BICARBONATE\SODIUM [Concomitant]
     Active Substance: POLYETHYLENE GLYCOL 3350\POTASSIUM CHLORIDE\SODIUM BICARBONATE\SODIUM CHLORIDE
  34. POLYETHYLENE GLYCOL 3350\POTASSIUM CHLORIDE\SODIUM BICARBONATE\SODIUM [Concomitant]
     Active Substance: POLYETHYLENE GLYCOL 3350\POTASSIUM CHLORIDE\SODIUM BICARBONATE\SODIUM CHLORIDE
     Route: 065
  35. POLYETHYLENE GLYCOL 3350\POTASSIUM CHLORIDE\SODIUM BICARBONATE\SODIUM [Concomitant]
     Active Substance: POLYETHYLENE GLYCOL 3350\POTASSIUM CHLORIDE\SODIUM BICARBONATE\SODIUM CHLORIDE
     Route: 065
  36. POLYETHYLENE GLYCOL 3350\POTASSIUM CHLORIDE\SODIUM BICARBONATE\SODIUM [Concomitant]
     Active Substance: POLYETHYLENE GLYCOL 3350\POTASSIUM CHLORIDE\SODIUM BICARBONATE\SODIUM CHLORIDE
  37. GLYCERIN [Concomitant]
     Active Substance: GLYCERIN
  38. GLYCERIN [Concomitant]
     Active Substance: GLYCERIN
     Route: 054
  39. GLYCERIN [Concomitant]
     Active Substance: GLYCERIN
     Route: 054
  40. GLYCERIN [Concomitant]
     Active Substance: GLYCERIN
  41. IBUPROFEN [Concomitant]
     Active Substance: IBUPROFEN
  42. IBUPROFEN [Concomitant]
     Active Substance: IBUPROFEN
     Route: 065
  43. IBUPROFEN [Concomitant]
     Active Substance: IBUPROFEN
     Route: 065
  44. IBUPROFEN [Concomitant]
     Active Substance: IBUPROFEN

REACTIONS (3)
  - Alanine aminotransferase increased [Recovered/Resolved]
  - Liver injury [Unknown]
  - Mental impairment [Unknown]
